FAERS Safety Report 4401440-7 (Version None)
Quarter: 2004Q3

REPORT INFORMATION
  Report Type: 
  Country: None (occurrence: None)
  Receive Date: 20040907
  Receipt Date: 20040506
  Transmission Date: 20050211
  Serious: No
  Sender: FDA-Public Use
  Company Number: US-BRISTOL-MYERS SQUIBB COMPANY-12581302

PATIENT
  Age: 70 Year
  Sex: Male

DRUGS (3)
  1. COUMADIN [Suspect]
     Indication: ATRIAL FIBRILLATION
     Dosage: GRADUALLY INCREASED
     Route: 048
     Dates: start: 20040326
  2. MULTI-VITAMIN [Concomitant]
  3. VITAMIN E [Concomitant]

REACTIONS (1)
  - THERAPEUTIC RESPONSE DECREASED [None]
